FAERS Safety Report 5620002-7 (Version None)
Quarter: 2008Q1

REPORT INFORMATION
  Report Type: 
  Country: None (occurrence: None)
  Receive Date: 20080208
  Receipt Date: 20080129
  Transmission Date: 20080703
  Serious: Yes (Hospitalization, Other)
  Sender: FDA-Public Use
  Company Number: US-ROCHE-543799

PATIENT
  Age: 69 Year
  Sex: Female

DRUGS (2)
  1. BONIVA [Suspect]
     Indication: OSTEOPOROSIS
     Route: 065
     Dates: start: 20050501, end: 20070501
  2. BONIVA [Suspect]
     Route: 065
     Dates: start: 20070801, end: 20071201

REACTIONS (4)
  - BONE DISORDER [None]
  - GASTROINTESTINAL DISORDER [None]
  - NERVE INJURY [None]
  - RENAL FAILURE [None]
